FAERS Safety Report 5299420-5 (Version None)
Quarter: 2007Q2

REPORT INFORMATION
  Report Type: 
  Country: None (occurrence: None)
  Receive Date: 20070417
  Receipt Date: 20070406
  Transmission Date: 20071010
  Serious: Yes (Hospitalization)
  Sender: FDA-Public Use
  Company Number: JP-BRISTOL-MYERS SQUIBB COMPANY-13746078

PATIENT
  Age: 42 Year
  Sex: Male

DRUGS (4)
  1. ARIPIPRAZOLE [Suspect]
     Indication: SCHIZOPHRENIA
     Route: 048
     Dates: start: 20070306, end: 20070402
  2. FLUVOXAMINE MALEATE [Concomitant]
     Dosage: 21-MAR-2007 DOSE REDUCED TO 50 MG
     Route: 048
     Dates: start: 20061127
  3. TRIAZOLAM [Concomitant]
     Dosage: DOSE CHANGED TO .5 MG ON 21-MAR-2007
     Route: 048
     Dates: start: 20061225
  4. FLUNITRAZEPAM [Concomitant]
     Route: 048
     Dates: start: 20070306, end: 20070320

REACTIONS (3)
  - DIARRHOEA [None]
  - HYPOKALAEMIA [None]
  - QUADRIPLEGIA [None]
